FAERS Safety Report 10218898 (Version 1)
Quarter: 2014Q2

REPORT INFORMATION
  Report Type: Report from Study
  Country: CA (occurrence: None)
  Receive Date: 20140603
  Receipt Date: 20140603
  Transmission Date: 20141212
  Serious: Yes (Other)
  Sender: FDA-Public Use
  Company Number: 2014000172

PATIENT
  Age: 76 Year
  Sex: Female
  Weight: 103 kg

DRUGS (3)
  1. ACEON (PERINDOPRIL ERBUMINE) TABLET [Suspect]
     Indication: HYPERTENSION
     Route: 048
     Dates: start: 20130924, end: 20131031
  2. ESOMEPRAZOLE (ESOMEPRAZOLE) [Concomitant]
  3. SALBUTAMOL (SALBUTAMOL) INHALER [Concomitant]

REACTIONS (3)
  - Hypertension [None]
  - Drug ineffective [None]
  - Cough [None]
